FAERS Safety Report 5906784-5 (Version None)
Quarter: 2008Q3

REPORT INFORMATION
  Report Type: 
  Country: None (occurrence: None)
  Receive Date: 20080930
  Receipt Date: 20080918
  Transmission Date: 20090109
  Serious: Yes (Hospitalization)
  Sender: FDA-Public Use
  Company Number: ABX29-08-0372

PATIENT
  Age: 69 Year
  Sex: Female
  Weight: 61.6 kg

DRUGS (3)
  1. ABRAXANE [Suspect]
     Dosage: 164 MG, INTRAVENOUS
     Route: 042
     Dates: start: 20080819
  2. CARBOPLATIN [Suspect]
     Dosage: 197 MG, INTRAVENOUS
     Route: 042
     Dates: start: 20080819
  3. TRASTUZUMAB (TRASTUZUMAB) [Suspect]
     Dosage: 123 MG, INTRAVENOUS
     Route: 042
     Dates: start: 20080819

REACTIONS (2)
  - HERPES ZOSTER [None]
  - NEUTROPHIL COUNT DECREASED [None]
